FAERS Safety Report 16081101 (Version 1)
Quarter: 2019Q1

REPORT INFORMATION
  Report Type: Spontaneous
  Country: ES (occurrence: ES)
  Receive Date: 20190316
  Receipt Date: 20190316
  Transmission Date: 20190418
  Serious: Yes (Hospitalization)
  Sender: FDA-Public Use
  Company Number: ES-CPL-000936

PATIENT
  Age: 82 Year
  Sex: Female

DRUGS (8)
  1. MANIDON [Interacting]
     Active Substance: VERAPAMIL HYDROCHLORIDE
     Indication: ATRIAL FIBRILLATION
     Dosage: 1/24 H
     Route: 048
     Dates: start: 20121002, end: 20190208
  2. QUETIAPINE/QUETIAPINE FUMARATE [Interacting]
     Active Substance: QUETIAPINE FUMARATE
     Indication: PRODUCT USED FOR UNKNOWN INDICATION
     Dosage: 0-0-1. CLINICAL COURSE CEX MENTAL HEALTH 09/01/2019: PAUTO QUETIAPINE 25-50MG AT BEDTIME
     Route: 048
     Dates: start: 20190109
  3. LORAZEPAM. [Concomitant]
     Active Substance: LORAZEPAM
     Dosage: 1-0-1
     Route: 048
  4. OMEPRAZOLE. [Concomitant]
     Active Substance: OMEPRAZOLE
     Dosage: 1-0-1
     Route: 048
  5. DONEPEZIL. [Suspect]
     Active Substance: DONEPEZIL
     Indication: COGNITIVE DISORDER
     Dosage: 1/24 H. CEX NEUROLOGIA 02/08/2018 GUIDELINES 5 MG A TABLET BEFORE GOING TO BED FOR A MONTH.
     Route: 048
     Dates: start: 201808, end: 20190214
  6. SINTROM [Concomitant]
     Active Substance: ACENOCOUMAROL
     Route: 048
  7. SERTRALINE [Concomitant]
     Active Substance: SERTRALINE HYDROCHLORIDE
     Dosage: 1-0-0
     Route: 048
  8. DORMICUM [Concomitant]
     Dosage: 0-0-1
     Route: 048

REACTIONS (4)
  - Syncope [Recovered/Resolved]
  - Atrial fibrillation [Recovered/Resolved]
  - Bradycardia [Recovered/Resolved]
  - Drug interaction [Unknown]

NARRATIVE: CASE EVENT DATE: 20190208
